FAERS Safety Report 17862419 (Version 2)
Quarter: 2025Q2

REPORT INFORMATION
  Report Type: Spontaneous
  Country: BE (occurrence: BE)
  Receive Date: 20200605
  Receipt Date: 20250621
  Transmission Date: 20250717
  Serious: Yes (Other)
  Sender: AUROBINDO
  Company Number: BE-ASTELLAS-2020US017268

PATIENT
  Age: 79 Year
  Sex: Female

DRUGS (1)
  1. AMOXICILLIN\CLAVULANIC ACID [Suspect]
     Active Substance: AMOXICILLIN\CLAVULANIC ACID
     Indication: Product used for unknown indication
     Route: 065

REACTIONS (2)
  - Angioedema [Unknown]
  - Urticaria [Unknown]
